FAERS Safety Report 7362500-4 (Version None)
Quarter: 2011Q1

REPORT INFORMATION
  Report Type: 
  Country: None (occurrence: None)
  Receive Date: 20110318
  Receipt Date: 20110317
  Transmission Date: 20110831
  Serious: Yes (Hospitalization)
  Sender: FDA-Public Use
  Company Number: US-AMGEN-USASP2011014902

PATIENT
  Sex: Male

DRUGS (1)
  1. XGEVA [Suspect]
     Indication: BLADDER CANCER
     Dosage: UNK
     Dates: start: 20110201

REACTIONS (2)
  - TOOTHACHE [None]
  - CYSTITIS [None]
